FAERS Safety Report 13681203 (Version 1)
Quarter: 2017Q2

REPORT INFORMATION
  Report Type: Spontaneous
  Country: US (occurrence: US)
  Receive Date: 20170622
  Receipt Date: 20170622
  Transmission Date: 20170830
  Serious: Yes (Other)
  Sender: FDA-Public Use
  Company Number: None

PATIENT
  Age: 59 Year
  Sex: Female
  Weight: 108 kg

DRUGS (25)
  1. ASPIRIN. [Concomitant]
     Active Substance: ASPIRIN
  2. LEVOTHYROXONE [Concomitant]
  3. ALENDRONATE [Concomitant]
     Active Substance: ALENDRONATE SODIUM
  4. FLAXSEED [Concomitant]
     Active Substance: FLAX SEED
  5. ADDERALL [Concomitant]
     Active Substance: AMPHETAMINE ASPARTATE\AMPHETAMINE SULFATE\DEXTROAMPHETAMINE SACCHARATE\DEXTROAMPHETAMINE SULFATE
  6. CLONAZEPAM. [Concomitant]
     Active Substance: CLONAZEPAM
  7. METFORMIN [Concomitant]
     Active Substance: METFORMIN HYDROCHLORIDE
  8. ATORVOSTATIN [Concomitant]
     Active Substance: ATORVASTATIN
  9. BENADRYL [Concomitant]
     Active Substance: DIPHENHYDRAMINE HYDROCHLORIDE
  10. METHADONE [Concomitant]
     Active Substance: METHADONE HYDROCHLORIDE
  11. CALCIUM [Concomitant]
     Active Substance: CALCIUM
  12. NORCO [Concomitant]
     Active Substance: ACETAMINOPHEN\HYDROCODONE BITARTRATE
  13. ABILIFY [Concomitant]
     Active Substance: ARIPIPRAZOLE
  14. INSULIN [Concomitant]
     Active Substance: INSULIN NOS
  15. IRON [Concomitant]
     Active Substance: IRON
  16. PEPCID [Concomitant]
     Active Substance: FAMOTIDINE
  17. CYMBALTA [Suspect]
     Active Substance: DULOXETINE HYDROCHLORIDE
     Indication: DEPRESSION
     Dosage: ?          QUANTITY:2 CAPSULE(S);?
     Route: 048
  18. BUPROPION. [Concomitant]
     Active Substance: BUPROPION
  19. MAGNESIUM [Concomitant]
     Active Substance: MAGNESIUM
  20. VITAMIN B12 [Concomitant]
     Active Substance: CYANOCOBALAMIN
  21. CYMBALTA [Suspect]
     Active Substance: DULOXETINE HYDROCHLORIDE
     Indication: PAIN
     Dosage: ?          QUANTITY:2 CAPSULE(S);?
     Route: 048
  22. BUSPIRONE [Concomitant]
     Active Substance: BUSPIRONE HYDROCHLORIDE
  23. VITAMIN D3 [Concomitant]
     Active Substance: CHOLECALCIFEROL
  24. CERTRIZINE [Concomitant]
  25. STOOL SOFTENER (DOCUSATE) [Concomitant]
     Active Substance: DOCUSATE

REACTIONS (9)
  - Vertigo [None]
  - Disturbance in attention [None]
  - Dizziness [None]
  - Therapy cessation [None]
  - Paraesthesia [None]
  - Mental impairment [None]
  - Product availability issue [None]
  - Withdrawal syndrome [None]
  - Loss of personal independence in daily activities [None]

NARRATIVE: CASE EVENT DATE: 20160615
